FAERS Safety Report 19877519 (Version 1)
Quarter: 2021Q3

REPORT INFORMATION
  Report Type: Spontaneous
  Country: US (occurrence: US)
  Receive Date: 20210923
  Receipt Date: 20210923
  Transmission Date: 20211014
  Serious: Yes (Other)
  Sender: FDA-Public Use
  Company Number: NVSC2021US212981

PATIENT
  Sex: Female

DRUGS (2)
  1. LETROZOLE. [Suspect]
     Active Substance: LETROZOLE
     Indication: BREAST CANCER
     Dosage: UNK
     Route: 065
  2. IBRANCE [Suspect]
     Active Substance: PALBOCICLIB
     Indication: BREAST CANCER
     Dosage: 100 MG, QD (21 DAYS ON, 7 DAYS OFF)
     Route: 048
     Dates: start: 202108

REACTIONS (7)
  - Irritable bowel syndrome [Unknown]
  - White blood cell count decreased [Unknown]
  - Constipation [Unknown]
  - Diarrhoea [Unknown]
  - Dry eye [Unknown]
  - Nausea [Unknown]
  - Red blood cell count decreased [Unknown]
